FAERS Safety Report 16129573 (Version 1)
Quarter: 2019Q1

REPORT INFORMATION
  Report Type: Spontaneous
  Country: FR (occurrence: FR)
  Receive Date: 20190328
  Receipt Date: 20190328
  Transmission Date: 20190418
  Serious: Yes (Hospitalization)
  Sender: FDA-Public Use
  Company Number: FR-MYLANLABS-2019M1028300

PATIENT
  Age: 3 Year
  Sex: Male

DRUGS (5)
  1. CEFOTAXIME [Suspect]
     Active Substance: CEFOTAXIME SODIUM
     Indication: OTITIS MEDIA ACUTE
     Dosage: 200 MILLIGRAM/KILOGRAM, QD
     Route: 065
  2. VANCOMYCIN [Suspect]
     Active Substance: VANCOMYCIN
     Indication: OTITIS MEDIA ACUTE
     Dosage: 40 MILLIGRAM/KILOGRAM, QD
     Route: 065
  3. AMOXICILLIN. [Suspect]
     Active Substance: AMOXICILLIN
     Indication: OTITIS MEDIA ACUTE
     Route: 065
  4. VANCOMYCIN [Suspect]
     Active Substance: VANCOMYCIN
     Dosage: DOSE WAS INCREASED ON DAY 3
     Route: 065
  5. CEFOTAXIME [Suspect]
     Active Substance: CEFOTAXIME SODIUM
     Dosage: DOSE WAS INCREASED ON DAY 3
     Route: 065

REACTIONS (2)
  - Pyrexia [Recovered/Resolved]
  - Meningism [Unknown]
